FAERS Safety Report 23050389 (Version 1)
Quarter: 2023Q4

REPORT INFORMATION
  Report Type: Spontaneous
  Country: CA (occurrence: CA)
  Receive Date: 20231010
  Receipt Date: 20231010
  Transmission Date: 20240110
  Serious: Yes (Life-Threatening)
  Sender: FDA-Public Use
  Company Number: CA-FreseniusKabi-FK202315904

PATIENT
  Age: 16 Year
  Sex: Male
  Weight: 55 kg

DRUGS (6)
  1. FLUDARABINE [Suspect]
     Active Substance: FLUDARABINE PHOSPHATE
     Indication: Stem cell transplant
     Dosage: DOSAGE FORM: NOT SPECIFIED
     Route: 042
  2. BUSULFAN [Suspect]
     Active Substance: BUSULFAN
     Indication: Stem cell transplant
     Dosage: NOT SPECIFIED
     Route: 042
  3. ALEMTUZUMAB [Suspect]
     Active Substance: ALEMTUZUMAB
     Indication: Stem cell transplant
     Dosage: SOLUTION INTRAVENOUS
     Route: 042
  4. ALEMTUZUMAB [Suspect]
     Active Substance: ALEMTUZUMAB
     Dosage: SOLUTION INTRAVENOUS
     Route: 042
  5. ALEMTUZUMAB [Suspect]
     Active Substance: ALEMTUZUMAB
     Dosage: SOLUTION INTRAVENOUS
     Route: 042
  6. THIOTEPA [Suspect]
     Active Substance: THIOTEPA
     Indication: Stem cell transplant
     Dosage: NOT SPECIFIED
     Route: 042

REACTIONS (7)
  - Aplastic anaemia [Recovered/Resolved]
  - Decreased appetite [Recovered/Resolved]
  - Mucosal inflammation [Recovered/Resolved]
  - Nausea [Recovered/Resolved]
  - Odynophagia [Recovered/Resolved]
  - Pain [Recovered/Resolved]
  - Vomiting [Recovered/Resolved]
